FAERS Safety Report 18454244 (Version 1)
Quarter: 2020Q4

REPORT INFORMATION
  Report Type: Spontaneous
  Country: US (occurrence: US)
  Receive Date: 20201102
  Receipt Date: 20201102
  Transmission Date: 20210114
  Serious: No
  Sender: FDA-Public Use
  Company Number: US-ELI_LILLY_AND_COMPANY-US202010008673

PATIENT
  Sex: Female

DRUGS (2)
  1. CYMBALTA [Suspect]
     Active Substance: DULOXETINE HYDROCHLORIDE
     Indication: DEPRESSION
     Dosage: 60 MG, UNKNOWN
     Route: 065
     Dates: start: 2006
  2. CLOZARIL [Suspect]
     Active Substance: CLOZAPINE
     Indication: DEPRESSION
     Dosage: UNK UNK, UNKNOWN
     Route: 065

REACTIONS (5)
  - Feeling abnormal [Unknown]
  - Irritability [Unknown]
  - Pain in extremity [Unknown]
  - Tachyphrenia [Unknown]
  - Malaise [Unknown]
